FAERS Safety Report 4877121-2 (Version None)
Quarter: 2005Q4

REPORT INFORMATION
  Report Type: 
  Country: None (occurrence: None)
  Receive Date: 20051206
  Receipt Date: 20050808
  Transmission Date: 20060501
  Serious: No
  Sender: FDA-Public Use
  Company Number: USA0508104948

PATIENT
  Age: 42 Year
  Sex: Male

DRUGS (2)
  1. CYMBALTA [Suspect]
     Indication: DEPRESSION
     Dates: start: 20050501
  2. LEXAPRO [Concomitant]

REACTIONS (3)
  - ERECTILE DYSFUNCTION [None]
  - FATIGUE [None]
  - PENIS DISORDER [None]
